FAERS Safety Report 8151389-1 (Version None)
Quarter: 2012Q1

REPORT INFORMATION
  Report Type: 
  Country: None (occurrence: None)
  Receive Date: 20120220
  Receipt Date: 20120216
  Transmission Date: 20120608
  Serious: Yes (Other)
  Sender: FDA-Public Use
  Company Number: KR-BAYER-2011-068416

PATIENT
  Weight: 62 kg

DRUGS (6)
  1. INTERFERON BETA-1B [Suspect]
     Indication: MULTIPLE SCLEROSIS
     Dosage: UNK
     Route: 058
     Dates: start: 20070418
  2. TEGRETOL [Concomitant]
     Indication: PAIN
  3. TEGRETOL [Concomitant]
     Indication: CONVULSION
  4. CORTICOSTEROIDS [Concomitant]
  5. ALKYLOXAN [Concomitant]
     Indication: NEOPLASM MALIGNANT
  6. LYRICA [Concomitant]
     Indication: NEURALGIA

REACTIONS (2)
  - INJECTION SITE ABSCESS [None]
  - MULTIPLE SCLEROSIS RELAPSE [None]
